FAERS Safety Report 23247058 (Version 1)
Quarter: 2023Q4

REPORT INFORMATION
  Report Type: Spontaneous
  Country: JP (occurrence: JP)
  Receive Date: 20231130
  Receipt Date: 20231130
  Transmission Date: 20240109
  Serious: Yes (Death, Other)
  Sender: FDA-Public Use
  Company Number: JP-BAYER-2023A171685

PATIENT
  Age: 46 Year
  Sex: Male

DRUGS (1)
  1. IOPAMIRON [Suspect]
     Active Substance: IOPAMIDOL
     Dosage: ONCE
     Dates: start: 202301, end: 202301

REACTIONS (1)
  - Anaphylactic shock [Fatal]
